FAERS Safety Report 20279837 (Version 1)
Quarter: 2022Q1

REPORT INFORMATION
  Report Type: Report from Study
  Country: US (occurrence: US)
  Receive Date: 20220103
  Receipt Date: 20220103
  Transmission Date: 20220423
  Serious: Yes (Hospitalization)
  Sender: FDA-Public Use
  Company Number: US-ABBVIE-21K-163-4155238-00

PATIENT
  Sex: Female
  Weight: 53.572 kg

DRUGS (15)
  1. HUMIRA [Suspect]
     Active Substance: ADALIMUMAB
     Indication: Crohn^s disease
     Dosage: CITRATE FREE
     Route: 058
     Dates: start: 20210528
  2. MODERNA COVID-19 VACCINE [Concomitant]
     Active Substance: ELASOMERAN
     Indication: COVID-19 immunisation
     Dosage: 1ST DOSE
     Route: 030
     Dates: start: 20210422, end: 20210422
  3. MODERNA COVID-19 VACCINE [Concomitant]
     Active Substance: ELASOMERAN
     Dosage: 2ND DOSE
     Route: 030
     Dates: start: 20210520, end: 20210520
  4. MODERNA COVID-19 VACCINE [Concomitant]
     Active Substance: ELASOMERAN
     Dosage: 3RD DOSE
     Route: 030
     Dates: start: 20211124, end: 20211124
  5. LIALDA [Concomitant]
     Active Substance: MESALAMINE
     Indication: Crohn^s disease
  6. OMEPRAZOLE [Concomitant]
     Active Substance: OMEPRAZOLE
     Indication: Gastrooesophageal reflux disease
  7. DICYCLOMINE [Concomitant]
     Active Substance: DICYCLOMINE HYDROCHLORIDE
     Indication: Gastrointestinal pain
  8. GABAPENTIN [Concomitant]
     Active Substance: GABAPENTIN
     Indication: Osteoporosis
  9. CELEBREX [Concomitant]
     Active Substance: CELECOXIB
     Indication: Osteoporosis
  10. CALCIUM [Concomitant]
     Active Substance: CALCIUM
     Indication: Osteoporosis
  11. VITAMIN D3 [Concomitant]
     Active Substance: CHOLECALCIFEROL
     Indication: Osteoporosis
  12. RECLAST [Concomitant]
     Active Substance: ZOLEDRONIC ACID
     Indication: Osteoporosis
     Dates: start: 20211228
  13. SUPER COLLAGEN + VITAMIN C + BIOTIN [Concomitant]
     Indication: Vitamin supplementation
  14. SUPER COLLAGEN + VITAMIN C + BIOTIN [Concomitant]
     Indication: Supplementation therapy
  15. ESTRADIOL [Concomitant]
     Active Substance: ESTRADIOL
     Indication: Prophylaxis urinary tract infection

REACTIONS (6)
  - Tooth extraction [Recovered/Resolved]
  - Post procedural complication [Unknown]
  - Endodontic procedure [Recovered/Resolved]
  - Osteoporosis [Unknown]
  - Vaginal infection [Recovered/Resolved]
  - Gingival pain [Recovered/Resolved]

NARRATIVE: CASE EVENT DATE: 20210101
